FAERS Safety Report 12429702 (Version 3)
Quarter: 2016Q3

REPORT INFORMATION
  Report Type: Report from Study
  Country: US (occurrence: US)
  Receive Date: 20160602
  Receipt Date: 20160729
  Transmission Date: 20161109
  Serious: Yes (Hospitalization, Other)
  Sender: FDA-Public Use
  Company Number: US-ABBVIE-16K-163-1639395-00

PATIENT
  Sex: Male

DRUGS (2)
  1. HUMIRA [Suspect]
     Active Substance: ADALIMUMAB
     Indication: CROHN^S DISEASE
     Route: 058
     Dates: start: 20150709, end: 201605
  2. HUMIRA [Suspect]
     Active Substance: ADALIMUMAB
     Route: 058
     Dates: start: 20160715

REACTIONS (6)
  - Cardiac index abnormal [Unknown]
  - Road traffic accident [Recovered/Resolved with Sequelae]
  - Rib fracture [Unknown]
  - Fluid retention [Unknown]
  - Abdominal adhesions [Unknown]
  - Pneumothorax [Unknown]

NARRATIVE: CASE EVENT DATE: 2016
